FAERS Safety Report 7365738-5 (Version None)
Quarter: 2011Q1

REPORT INFORMATION
  Report Type: 
  Country: None (occurrence: None)
  Receive Date: 20110322
  Receipt Date: 20110321
  Transmission Date: 20110831
  Serious: No
  Sender: FDA-Public Use
  Company Number: US-PFIZER INC-2011061358

PATIENT
  Sex: Female
  Weight: 72.562 kg

DRUGS (8)
  1. ADVIL LIQUI-GELS [Suspect]
     Indication: ARTHRITIS
     Dosage: 400 MG, AS NEEDED
     Route: 048
     Dates: start: 20110101
  2. VITAMIN D [Concomitant]
     Indication: SUPPLEMENTATION THERAPY
     Dosage: UNK
  3. FISH OIL [Concomitant]
     Indication: ROUTINE HEALTH MAINTENANCE
     Dosage: UNK
  4. VITAMIN B6 [Concomitant]
     Indication: SUPPLEMENTATION THERAPY
     Dosage: UNK
  5. ADVIL LIQUI-GELS [Suspect]
     Indication: SLEEP DISORDER
  6. LOSARTAN [Concomitant]
     Indication: BLOOD PRESSURE ABNORMAL
     Dosage: 50-1245MG DAILY
  7. AMLODIPINE [Concomitant]
     Indication: BLOOD PRESSURE ABNORMAL
     Dosage: 5 MG, 1X/DAY
  8. CALCIUM [Concomitant]
     Indication: SUPPLEMENTATION THERAPY
     Dosage: UNK

REACTIONS (2)
  - DIZZINESS [None]
  - PRODUCT QUALITY ISSUE [None]
